FAERS Safety Report 11358509 (Version 1)
Quarter: 2015Q3

REPORT INFORMATION
  Report Type: Spontaneous
  Country: US (occurrence: US)
  Receive Date: 20150803
  Receipt Date: 20150803
  Transmission Date: 20151125
  Serious: No
  Sender: FDA-Public Use
  Company Number: US-ELI_LILLY_AND_COMPANY-US201004006474

PATIENT
  Sex: Female

DRUGS (3)
  1. FELDENE [Concomitant]
     Active Substance: PIROXICAM
     Indication: PAIN
  2. PRISTIQ EXTENDED RELEASE [Concomitant]
     Active Substance: DESVENLAFAXINE SUCCINATE
     Indication: DEPRESSION
  3. ZYPREXA [Suspect]
     Active Substance: OLANZAPINE
     Indication: DEPRESSION

REACTIONS (2)
  - Blood prolactin increased [Unknown]
  - Galactorrhoea [Unknown]
